FAERS Safety Report 9868653 (Version 1)
Quarter: 2014Q1

REPORT INFORMATION
  Report Type: Report from Study
  Country: US (occurrence: US)
  Receive Date: 20140204
  Receipt Date: 20140204
  Transmission Date: 20141002
  Serious: Yes (Death, Hospitalization)
  Sender: FDA-Public Use
  Company Number: US-009507513-1402USA001068

PATIENT
  Age: 56 Year
  Sex: Male
  Weight: 57.7 kg

DRUGS (3)
  1. VORINOSTAT [Suspect]
     Indication: ACUTE MYELOID LEUKAEMIA
     Dosage: 500 MG, TID, ON DAYS 1-3
     Route: 048
     Dates: start: 20131213, end: 20131215
  2. IDARUBICIN [Suspect]
     Indication: ACUTE MYELOID LEUKAEMIA
     Dosage: 12 MG/M2/DAY OVER 15 MIN ON DAYS 4-6
     Route: 042
     Dates: start: 20131216, end: 20131218
  3. CYTARABINE [Suspect]
     Indication: ACUTE MYELOID LEUKAEMIA
     Dosage: 1500MG/M2/DAY, CONTINUOUS IV INFUSION ON DAYS 4-7
     Route: 042
     Dates: start: 20131216, end: 20131219

REACTIONS (1)
  - Pulmonary haemorrhage [Fatal]
